FAERS Safety Report 8221700-1 (Version None)
Quarter: 2012Q1

REPORT INFORMATION
  Report Type: 
  Country: None (occurrence: None)
  Receive Date: 20120314
  Receipt Date: 20111122
  Transmission Date: 20120608
  Serious: Yes (Other)
  Sender: FDA-Public Use
  Company Number: 2011SP054893

PATIENT

DRUGS (3)
  1. PEG-INTRON [Suspect]
     Indication: HEPATITIS C
     Dates: start: 20111001
  2. REBETOL [Suspect]
     Indication: HEPATITIS C
     Dates: start: 20111001
  3. VICTRELIS [Suspect]
     Indication: HEPATITIS C
     Dosage: 800 MG;Q8H;PO
     Route: 048
     Dates: start: 20111122

REACTIONS (1)
  - BLOOD TRIGLYCERIDES INCREASED [None]
